FAERS Safety Report 5078112-1 (Version None)
Quarter: 2006Q3

REPORT INFORMATION
  Report Type: 
  Country: None (occurrence: None)
  Receive Date: 20060811
  Receipt Date: 20060801
  Transmission Date: 20061208
  Serious: Yes (Death, Other)
  Sender: FDA-Public Use
  Company Number: US-JNJFOC-20060604924

PATIENT
  Sex: Female
  Weight: 88.91 kg

DRUGS (4)
  1. REMICADE [Suspect]
     Dosage: 4 INFUSIONS ON UNSPECIFIED DATES.
     Route: 042
  2. REMICADE [Suspect]
     Indication: CROHN'S DISEASE
     Route: 042
  3. IMURAN [Concomitant]
  4. STEROIDS [Concomitant]

REACTIONS (1)
  - METASTATIC MALIGNANT MELANOMA [None]
